FAERS Safety Report 17554678 (Version 2)
Quarter: 2020Q2

REPORT INFORMATION
  Report Type: Spontaneous
  Country: US (occurrence: US)
  Receive Date: 20200318
  Receipt Date: 20200406
  Transmission Date: 20200713
  Serious: Yes (Life-Threatening, Hospitalization, Other)
  Sender: FDA-Public Use
  Company Number: US-AUROBINDO-AUR-APL-2020-013140

PATIENT
  Age: 32 Year
  Sex: Female

DRUGS (10)
  1. DEXAMETHASONE. [Suspect]
     Active Substance: DEXAMETHASONE
     Indication: NAUSEA
  2. PONATINIB [Suspect]
     Active Substance: PONATINIB
     Indication: HEPATOCELLULAR CARCINOMA
     Dosage: UNK
     Route: 065
  3. PREDNISONE. [Suspect]
     Active Substance: PREDNISONE
     Indication: RASH
     Dosage: 1 DOSAGE FORM
     Route: 065
  4. NIVOLUMAB [Suspect]
     Active Substance: NIVOLUMAB
     Indication: HEPATOCELLULAR CARCINOMA
     Dosage: EVERY 2 WEEKS AT A STANDARD DOSE FOR 3 MONTHS
     Route: 065
  5. FOLINIC ACID [Suspect]
     Active Substance: LEUCOVORIN
     Indication: HEPATOCELLULAR CARCINOMA
     Dosage: UNK, CYCLICAL
     Route: 065
  6. DEXAMETHASONE. [Suspect]
     Active Substance: DEXAMETHASONE
     Indication: TRANSAMINASES INCREASED
     Dosage: UNK
     Route: 065
  7. SORAFENIB [Suspect]
     Active Substance: SORAFENIB
     Indication: HEPATOCELLULAR CARCINOMA
     Dosage: UNK, CYCLICAL
     Route: 065
  8. GEMCITABINE. [Suspect]
     Active Substance: GEMCITABINE
     Indication: HEPATOCELLULAR CARCINOMA
     Dosage: UNK
     Route: 065
  9. FLUOROURACIL. [Suspect]
     Active Substance: FLUOROURACIL
     Indication: HEPATOCELLULAR CARCINOMA
     Dosage: UNK
     Route: 065
  10. OXALIPLATIN. [Suspect]
     Active Substance: OXALIPLATIN
     Indication: HEPATOCELLULAR CARCINOMA
     Dosage: UNK UNK, CYCLICAL
     Route: 065

REACTIONS (6)
  - Catabolic state [Unknown]
  - Toxicity to various agents [Unknown]
  - Hyperammonaemia [Recovering/Resolving]
  - Condition aggravated [Recovering/Resolving]
  - Soft tissue necrosis [Unknown]
  - Hyperammonaemic encephalopathy [Unknown]
